FAERS Safety Report 22006533 (Version 7)
Quarter: 2023Q2

REPORT INFORMATION
  Report Type: Spontaneous
  Country: US (occurrence: US)
  Receive Date: 20230217
  Receipt Date: 20230524
  Transmission Date: 20230721
  Serious: No
  Sender: FDA-Public Use
  Company Number: US-PFIZER INC-PV202300029615

PATIENT
  Age: 51 Year
  Sex: Female

DRUGS (1)
  1. IBRANCE [Suspect]
     Active Substance: PALBOCICLIB
     Dosage: 125 MG

REACTIONS (7)
  - Ageusia [Not Recovered/Not Resolved]
  - Full blood count abnormal [Unknown]
  - Vomiting [Not Recovered/Not Resolved]
  - Stomatitis [Unknown]
  - Fatigue [Unknown]
  - Taste disorder [Not Recovered/Not Resolved]
  - Neoplasm progression [Unknown]
